FAERS Safety Report 10340494 (Version 1)
Quarter: 2014Q3

REPORT INFORMATION
  Report Type: Spontaneous
  Country: CL (occurrence: CL)
  Receive Date: 20140724
  Receipt Date: 20140724
  Transmission Date: 20150326
  Serious: Yes (Other)
  Sender: FDA-Public Use
  Company Number: CL-PFIZER INC-2014202603

PATIENT
  Age: 69 Year
  Sex: Female

DRUGS (1)
  1. XALATAN [Suspect]
     Active Substance: LATANOPROST

REACTIONS (2)
  - Platelet transfusion [Unknown]
  - Hip fracture [Unknown]

NARRATIVE: CASE EVENT DATE: 20140626
